FAERS Safety Report 4494154-9 (Version None)
Quarter: 2004Q4

REPORT INFORMATION
  Report Type: 
  Country: None (occurrence: None)
  Receive Date: 20041104
  Receipt Date: 20041104
  Transmission Date: 20050328
  Serious: Yes (Hospitalization)
  Sender: FDA-Public Use
  Company Number: None

PATIENT
  Age: 60 Year
  Sex: Male

DRUGS (14)
  1. LIPITOR [Suspect]
     Indication: HYPERLIPIDAEMIA
     Dosage: 40 MG  BEDTIME   ORAL
     Route: 048
  2. FERROUS SULFATE TAB [Concomitant]
  3. COLCHICINE [Concomitant]
  4. DIGITEK [Concomitant]
  5. LASIX [Concomitant]
  6. ALLOPURINOL [Concomitant]
  7. NORVASC [Concomitant]
  8. ASPIRIN [Concomitant]
  9. POTASSIUM [Concomitant]
  10. NITRO-QUICK [Concomitant]
  11. COREG [Concomitant]
  12. INSPRA [Concomitant]
  13. ATACAND [Concomitant]
  14. CLARITIN [Concomitant]

REACTIONS (4)
  - ASTHENIA [None]
  - DECREASED APPETITE [None]
  - MYALGIA [None]
  - PAIN [None]
